FAERS Safety Report 20169732 (Version 1)
Quarter: 2021Q4

REPORT INFORMATION
  Report Type: Spontaneous
  Country: US (occurrence: US)
  Receive Date: 20211210
  Receipt Date: 20211210
  Transmission Date: 20220304
  Serious: No
  Sender: FDA-Public Use
  Company Number: US-DSJP-DSU-2021-141124AA

PATIENT
  Age: 60 Year
  Sex: Female

DRUGS (1)
  1. ENHERTU [Suspect]
     Active Substance: FAM-TRASTUZUMAB DERUXTECAN-NXKI
     Indication: HER2 positive breast cancer
     Dosage: 5.4 MG/KG, UNK
     Route: 065

REACTIONS (3)
  - Therapeutic response unexpected [Unknown]
  - Memory impairment [Unknown]
  - Flat affect [Unknown]

NARRATIVE: CASE EVENT DATE: 20210101
